APPROVED DRUG PRODUCT: ALBUTEROL SULFATE
Active Ingredient: ALBUTEROL SULFATE
Strength: EQ 2MG BASE/5ML
Dosage Form/Route: SYRUP;ORAL
Application: A073165 | Product #001
Applicant: WATSON LABORATORIES INC
Approved: Apr 29, 1993 | RLD: No | RS: No | Type: DISCN